FAERS Safety Report 13839664 (Version 1)
Quarter: 2017Q3

REPORT INFORMATION
  Report Type: Spontaneous
  Country: US (occurrence: US)
  Receive Date: 20170805
  Receipt Date: 20170805
  Transmission Date: 20171127
  Serious: Yes (Hospitalization)
  Sender: FDA-Public Use
  Company Number: None

PATIENT
  Age: 67 Year
  Sex: Female

DRUGS (21)
  1. QUETIAPINE. [Concomitant]
     Active Substance: QUETIAPINE
  2. BUMETANIDE. [Suspect]
     Active Substance: BUMETANIDE
     Indication: OEDEMA
     Route: 048
     Dates: start: 20170328, end: 20170411
  3. SULFAMETHOXAZOLE/TRIMETHOPRIM [Concomitant]
     Active Substance: SULFAMETHOXAZOLE\TRIMETHOPRIM
  4. ABACAVIR. [Concomitant]
     Active Substance: ABACAVIR
  5. FLUTICASONE. [Concomitant]
     Active Substance: FLUTICASONE
  6. MAGNESIUM OXIDE. [Concomitant]
     Active Substance: MAGNESIUM OXIDE
  7. MULTIVITAMIN [Concomitant]
     Active Substance: VITAMINS
  8. CALCIUM + VITAMIN D [Concomitant]
     Active Substance: CALCIUM\VITAMIN D
  9. OMEPRAZOLE. [Concomitant]
     Active Substance: OMEPRAZOLE
  10. PREDNISONE. [Concomitant]
     Active Substance: PREDNISONE
  11. WARFARIN [Concomitant]
     Active Substance: WARFARIN
  12. ALPRAZOLAM. [Concomitant]
     Active Substance: ALPRAZOLAM
  13. GABAPENTIN. [Concomitant]
     Active Substance: GABAPENTIN
  14. LEVOTHYROXINE. [Concomitant]
     Active Substance: LEVOTHYROXINE
  15. LOPERAMIDE [Concomitant]
     Active Substance: LOPERAMIDE
  16. TRAVOPROST. [Concomitant]
     Active Substance: TRAVOPROST
  17. CITALOPRAM [Concomitant]
     Active Substance: CITALOPRAM HYDROBROMIDE
  18. ZOLPIDEM [Concomitant]
     Active Substance: ZOLPIDEM\ZOLPIDEM TARTRATE
  19. ATORVASTATIN [Concomitant]
     Active Substance: ATORVASTATIN
  20. CHOLESTYRAMINE. [Concomitant]
     Active Substance: CHOLESTYRAMINE
  21. METOPROLOL. [Concomitant]
     Active Substance: METOPROLOL

REACTIONS (14)
  - Acute kidney injury [None]
  - Dyspnoea [None]
  - Diarrhoea [None]
  - Hypotension [None]
  - Hyponatraemia [None]
  - Limb injury [None]
  - Dizziness postural [None]
  - Traumatic haematoma [None]
  - Pain [None]
  - Presyncope [None]
  - Fall [None]
  - Hypochloraemia [None]
  - Polyuria [None]
  - Hypovolaemia [None]

NARRATIVE: CASE EVENT DATE: 20170411
